FAERS Safety Report 8605876 (Version 4)
Quarter: 2013Q1

REPORT INFORMATION
  Report Type: Report from Study
  Country: GB (occurrence: GB)
  Receive Date: 20120608
  Receipt Date: 20130301
  Transmission Date: 20140127
  Serious: Yes (Hospitalization)
  Sender: FDA-Public Use
  Company Number: GB-ROCHE-1076015

PATIENT
  Age: 51 Year
  Sex: Male
  Weight: 82.7 kg

DRUGS (2)
  1. VEMURAFENIB [Suspect]
     Indication: MALIGNANT MELANOMA
     Dosage: LAST DOSE PRIOR TO SAE ON 04/JUN/2012
     Route: 048
     Dates: start: 20111024, end: 20120604
  2. VEMURAFENIB [Suspect]
     Route: 048
     Dates: start: 20120605

REACTIONS (1)
  - Anaemia [Recovered/Resolved with Sequelae]
